FAERS Safety Report 6260884-1 (Version None)
Quarter: 2009Q3

REPORT INFORMATION
  Report Type: 
  Country: None (occurrence: None)
  Receive Date: 20090707
  Receipt Date: 20090626
  Transmission Date: 20100115
  Serious: Yes (Hospitalization)
  Sender: FDA-Public Use
  Company Number: 2009EU002163

PATIENT
  Age: 42 Year
  Sex: Male

DRUGS (2)
  1. PROTOPIC [Suspect]
     Indication: ECZEMA
     Dosage: /D, TOPICAL
     Route: 061
     Dates: end: 20090226
  2. TAHOR [Concomitant]

REACTIONS (3)
  - FACIAL PALSY [None]
  - INFLUENZA LIKE ILLNESS [None]
  - LOBAR PNEUMONIA [None]
